FAERS Safety Report 5285728-6 (Version None)
Quarter: 2007Q1

REPORT INFORMATION
  Report Type: 
  Country: None (occurrence: None)
  Receive Date: 20070126
  Receipt Date: 20061010
  Transmission Date: 20070707
  Serious: No
  Sender: FDA-Public Use
  Company Number: 2006CT000779

PATIENT
  Age: 59 Year
  Sex: Female
  Weight: 72.5755 kg

DRUGS (13)
  1. VENTAVIS [Suspect]
     Indication: PULMONARY HYPERTENSION
     Dosage: 5 UG;5XD;INH
     Route: 055
     Dates: start: 20060707
  2. COENZYME Q10 [Concomitant]
  3. CYANOCOBALAMIN [Concomitant]
  4. FOLIC ACID [Concomitant]
  5. ASPIRIN [Concomitant]
  6. DIOVAN HCT [Concomitant]
  7. ACIPHEX [Concomitant]
  8. SILDENAFIL CITRATE [Concomitant]
  9. TRACLEER [Concomitant]
  10. FUROSEMIDE [Concomitant]
  11. CAPTOPRIL [Concomitant]
  12. LABETALOL HCL [Concomitant]
  13. DILTIAZEM [Concomitant]

REACTIONS (1)
  - THIRST [None]
